FAERS Safety Report 5813631-9 (Version None)
Quarter: 2008Q3

REPORT INFORMATION
  Report Type: 
  Country: None (occurrence: None)
  Receive Date: 20080717
  Receipt Date: 20080710
  Transmission Date: 20090109
  Serious: Yes (Other)
  Sender: FDA-Public Use
  Company Number: US-JNJFOC-20061006161

PATIENT
  Sex: Male

DRUGS (3)
  1. RISPERDAL [Suspect]
  2. RISPERDAL [Suspect]
     Indication: SCHIZOAFFECTIVE DISORDER
  3. SEROQUEL [Suspect]
     Indication: DRUG USE FOR UNKNOWN INDICATION

REACTIONS (8)
  - DIZZINESS [None]
  - EXTRAPYRAMIDAL DISORDER [None]
  - MUSCLE TWITCHING [None]
  - PARAESTHESIA [None]
  - PARKINSONISM [None]
  - SEDATION [None]
  - TYPE 2 DIABETES MELLITUS [None]
  - WEIGHT INCREASED [None]
